FAERS Safety Report 6272450-2 (Version None)
Quarter: 2009Q3

REPORT INFORMATION
  Report Type: 
  Country: None (occurrence: None)
  Receive Date: 20090715
  Receipt Date: 20090702
  Transmission Date: 20100115
  Serious: Yes (Other)
  Sender: FDA-Public Use
  Company Number: CHPA2009US14698

PATIENT
  Age: 66 Year
  Sex: Female
  Weight: 79.4 kg

DRUGS (4)
  1. BENEFIBER W/ WHEAT DEXTRIN CAPLET [Suspect]
     Indication: NUTRITIONAL SUPPORT
     Dosage: 1 DF BID ORAL
     Route: 048
     Dates: start: 20060101, end: 20090601
  2. SIMVASTATIN [Concomitant]
  3. METOPROLOL SUCCINATE [Concomitant]
  4. ZETIA [Concomitant]

REACTIONS (4)
  - GENERALISED OEDEMA [None]
  - HYPOTHYROIDISM [None]
  - PHARYNGEAL OEDEMA [None]
  - URTICARIA [None]
